FAERS Safety Report 11930693 (Version 1)
Quarter: 2016Q1

REPORT INFORMATION
  Report Type: Spontaneous
  Country: US (occurrence: US)
  Receive Date: 20160120
  Receipt Date: 20160120
  Transmission Date: 20160526
  Serious: Yes (Hospitalization)
  Sender: FDA-Public Use
  Company Number: US-B.I. PHARMACEUTICALS,INC./RIDGEFIELD-2016-BI-02283BP

PATIENT
  Sex: Male

DRUGS (1)
  1. PRADAXA [Suspect]
     Active Substance: DABIGATRAN ETEXILATE MESYLATE
     Indication: ATRIAL FIBRILLATION
     Dosage: 300 MG
     Route: 048
     Dates: start: 2012

REACTIONS (10)
  - Pleural effusion [Not Recovered/Not Resolved]
  - Oxygen saturation decreased [Unknown]
  - Malaise [Unknown]
  - Asthenia [Unknown]
  - Cardiac disorder [Unknown]
  - Head discomfort [Unknown]
  - Mental disorder [Unknown]
  - General physical health deterioration [Unknown]
  - Hydrothorax [Not Recovered/Not Resolved]
  - Cyanosis [Unknown]
